FAERS Safety Report 20222279 (Version 1)
Quarter: 2021Q4

REPORT INFORMATION
  Report Type: Report from Study
  Country: US (occurrence: None)
  Receive Date: 20211223
  Receipt Date: 20211223
  Transmission Date: 20220303
  Serious: Yes (Other)
  Sender: FDA-Public Use
  Company Number: 2021A886468

PATIENT
  Sex: Male

DRUGS (1)
  1. LYNPARZA [Suspect]
     Active Substance: OLAPARIB
     Indication: Prostate cancer
     Route: 048
     Dates: start: 20211006, end: 20211213

REACTIONS (4)
  - Carbohydrate antigen 125 increased [Unknown]
  - Condition aggravated [Unknown]
  - Hypokinesia [Unknown]
  - Drug ineffective [Unknown]
